FAERS Safety Report 18793354 (Version 1)
Quarter: 2021Q1

REPORT INFORMATION
  Report Type: Spontaneous
  Country: US (occurrence: US)
  Receive Date: 20210126
  Receipt Date: 20210126
  Transmission Date: 20210419
  Serious: No
  Sender: FDA-Public Use
  Company Number: None

PATIENT
  Age: 33 Year
  Sex: Female

DRUGS (1)
  1. GENERIC BUPRENORPHINE/NALOXONE TABS [Suspect]
     Active Substance: BUPRENORPHINE\NALOXONE
     Indication: DRUG DEPENDENCE
     Route: 060
     Dates: start: 20190408, end: 20190625

REACTIONS (2)
  - Withdrawal syndrome [None]
  - Therapeutic product effect decreased [None]

NARRATIVE: CASE EVENT DATE: 20190625
